FAERS Safety Report 9391203 (Version 1)
Quarter: 2013Q3

REPORT INFORMATION
  Report Type: Spontaneous
  Country: DE (occurrence: DE)
  Receive Date: 20130709
  Receipt Date: 20130709
  Transmission Date: 20140515
  Serious: Yes (Congenital Anomaly, Other)
  Sender: FDA-Public Use
  Company Number: DE-MYLANLABS-2013S1013989

PATIENT
  Age: 0 Year
  Sex: Female
  Weight: 2.64 kg

DRUGS (4)
  1. MIRTAZAPINE [Suspect]
     Dosage: 0.5 [MG/D ]
     Route: 064
  2. BISOPROLOL [Suspect]
     Dosage: 1 [MG/D ]/ 2 X 0.5 MG/D
     Route: 064
  3. METOPROLOL [Suspect]
     Dosage: 47.5 [MG/D ]
     Route: 064
  4. FOLIC ACID [Concomitant]
     Indication: PROPHYLAXIS OF NEURAL TUBE DEFECT
     Dosage: 0.4 [MG/D ]
     Route: 064

REACTIONS (4)
  - Congenital hydronephrosis [Unknown]
  - Renal aplasia [Not Recovered/Not Resolved]
  - Exposure during pregnancy [Recovered/Resolved]
  - Low birth weight baby [Unknown]
